FAERS Safety Report 5270106-6 (Version None)
Quarter: 2007Q1

REPORT INFORMATION
  Report Type: 
  Country: None (occurrence: None)
  Receive Date: 20070320
  Receipt Date: 20070307
  Transmission Date: 20070707
  Serious: Yes (Hospitalization)
  Sender: FDA-Public Use
  Company Number: BE-ELI_LILLY_AND_COMPANY-BE200608001689

PATIENT
  Age: 78 Year
  Sex: Female
  Weight: 72 kg

DRUGS (5)
  1. CYMBALTA [Suspect]
     Indication: DEPRESSION
     Dosage: 60 MG, DAILY (1/D)
     Route: 048
     Dates: start: 20060620, end: 20060808
  2. CAPTOPRIL [Concomitant]
     Indication: HYPERTENSION
     Dosage: 50 MG, 2/D
     Route: 048
  3. OMEPRAZOLE [Concomitant]
     Indication: GASTRIC ULCER
     Dosage: 20 MG, DAILY (1/D)
     Route: 048
  4. LORAMET                                 /BEL/ [Concomitant]
     Indication: ANXIETY
     Dosage: 2 MG, DAILY (1/D)
     Route: 048
  5. CARDIOASPIRINE [Concomitant]
     Dosage: 100 MG, DAILY (1/D)
     Route: 048

REACTIONS (5)
  - BLOOD CREATINE PHOSPHOKINASE MB INCREASED [None]
  - BLOOD LACTATE DEHYDROGENASE INCREASED [None]
  - ELECTROCARDIOGRAM ST SEGMENT DEPRESSION [None]
  - GAIT DISTURBANCE [None]
  - MUSCULOSKELETAL DISCOMFORT [None]
